FAERS Safety Report 15181013 (Version 1)
Quarter: 2018Q3

REPORT INFORMATION
  Report Type: Spontaneous
  Country: US (occurrence: US)
  Receive Date: 20180624
  Receipt Date: 20180624
  Transmission Date: 20181010
  Serious: Yes (Disabling)
  Sender: FDA-Public Use
  Company Number: None

PATIENT
  Age: 38 Year
  Sex: Female
  Weight: 52.62 kg

DRUGS (10)
  1. FISH OIL PILLS [Concomitant]
  2. MOTHERWORT HERBAL TINCTURE [Concomitant]
  3. HERBAL TINCTURE [Concomitant]
  4. ZINC. [Concomitant]
     Active Substance: ZINC
  5. SUPPLEMENTS [Concomitant]
     Active Substance: UNSPECIFIED INGREDIENT
  6. PARAGARD T 380A [Suspect]
     Active Substance: COPPER
  7. CALCIUM [Concomitant]
     Active Substance: CALCIUM
  8. B6 [Concomitant]
     Active Substance: PYRIDOXINE HYDROCHLORIDE
  9. ANTI ANXIETY MEDS [Concomitant]
  10. MAGNESIUM [Concomitant]
     Active Substance: MAGNESIUM

REACTIONS (13)
  - Heart rate increased [None]
  - Chest pain [None]
  - Impaired work ability [None]
  - Anxiety [None]
  - Alopecia [None]
  - Tachycardia [None]
  - Vertigo [None]
  - Paraesthesia [None]
  - Nausea [None]
  - Back pain [None]
  - Musculoskeletal pain [None]
  - Weight increased [None]
  - Headache [None]

NARRATIVE: CASE EVENT DATE: 20180131
